FAERS Safety Report 17694206 (Version 2)
Quarter: 2020Q2

REPORT INFORMATION
  Report Type: Report from Study
  Country: US (occurrence: US)
  Receive Date: 20200422
  Receipt Date: 20200505
  Transmission Date: 20200714
  Serious: Yes (Death)
  Sender: FDA-Public Use
  Company Number: US-ACTELION-A-NJ2020-203664

PATIENT
  Sex: Female
  Weight: 68.48 kg

DRUGS (9)
  1. OPSUMIT [Suspect]
     Active Substance: MACITENTAN
     Indication: PULMONARY HYPERTENSION
     Dosage: 10 MG, QD
     Route: 048
     Dates: start: 20200110
  2. METFORMIN [Concomitant]
     Active Substance: METFORMIN HYDROCHLORIDE
  3. ELIQUIS [Concomitant]
     Active Substance: APIXABAN
  4. AMIODARONE [Concomitant]
     Active Substance: AMIODARONE
  5. INSULIN [Concomitant]
     Active Substance: INSULIN NOS
  6. FELODIPINE. [Concomitant]
     Active Substance: FELODIPINE
  7. LOSARTAN. [Concomitant]
     Active Substance: LOSARTAN
  8. CLONIDINE. [Concomitant]
     Active Substance: CLONIDINE
  9. TADALAFIL. [Concomitant]
     Active Substance: TADALAFIL

REACTIONS (6)
  - Pulmonary oedema [Fatal]
  - Dyspnoea exertional [Recovered/Resolved]
  - Concomitant disease progression [Fatal]
  - Renal failure [Fatal]
  - Cardiac failure congestive [Fatal]
  - Right ventricular failure [Fatal]
